FAERS Safety Report 5568175-9 (Version None)
Quarter: 2007Q4

REPORT INFORMATION
  Report Type: 
  Country: None (occurrence: None)
  Receive Date: 20071218
  Receipt Date: 20071218
  Transmission Date: 20080405
  Serious: Yes (Hospitalization)
  Sender: FDA-Public Use
  Company Number: None

PATIENT
  Sex: Male
  Weight: 70.9 kg

DRUGS (2)
  1. FLUOROURACIL [Suspect]
     Dosage: 7760 MG
  2. MITOMYCIN [Suspect]
     Dosage: 19 MG

REACTIONS (4)
  - BODY TEMPERATURE INCREASED [None]
  - NEUTROPHIL COUNT ABNORMAL [None]
  - PROCTALGIA [None]
  - WHITE BLOOD CELL COUNT ABNORMAL [None]
